FAERS Safety Report 25249313 (Version 1)
Quarter: 2025Q2

REPORT INFORMATION
  Report Type: Spontaneous
  Country: US (occurrence: US)
  Receive Date: 20250429
  Receipt Date: 20250429
  Transmission Date: 20250716
  Serious: Yes (Hospitalization)
  Sender: AMGEN
  Company Number: US-AMGEN-USASP2025080097

PATIENT
  Age: 24 Year
  Sex: Female

DRUGS (2)
  1. PREDNISONE [Suspect]
     Active Substance: PREDNISONE
     Indication: Hypersensitivity vasculitis
     Route: 065
  2. NITROGLYCERIN [Concomitant]
     Active Substance: NITROGLYCERIN
     Route: 060

REACTIONS (7)
  - Weight decreased [Unknown]
  - Fatigue [Unknown]
  - Coronary artery disease [Unknown]
  - Ischaemia [Unknown]
  - Eosinophilia [Recovered/Resolved]
  - Hypereosinophilic syndrome [Unknown]
  - Nausea [Unknown]
